FAERS Safety Report 15723562 (Version 1)
Quarter: 2018Q4

REPORT INFORMATION
  Report Type: Spontaneous
  Country: ZA (occurrence: ZA)
  Receive Date: 20181214
  Receipt Date: 20181214
  Transmission Date: 20190205
  Serious: Yes (Hospitalization, Other)
  Sender: FDA-Public Use
  Company Number: ZA-PFIZER INC-2018492484

PATIENT
  Age: 66 Year
  Sex: Male

DRUGS (5)
  1. EZETROL [Suspect]
     Active Substance: EZETIMIBE
     Dosage: 10 MG, UNK
     Dates: end: 20180929
  2. ECOTRIN [Suspect]
     Active Substance: ASPIRIN
     Dosage: 81 MG, UNK
     Dates: end: 20180929
  3. LORIEN [Suspect]
     Active Substance: FLUOXETINE HYDROCHLORIDE
     Dosage: 20 MG, UNK
     Dates: end: 20180929
  4. ASPAVOR [Suspect]
     Active Substance: ATORVASTATIN
     Indication: BLOOD CHOLESTEROL
     Dosage: 40 MG, UNK
     Dates: start: 2012, end: 20180929
  5. BRAZEPAM [Suspect]
     Active Substance: BROMAZEPAM
     Dosage: 6 MG, UNK
     Dates: end: 20180929

REACTIONS (2)
  - Road traffic accident [Unknown]
  - Multiple fractures [Unknown]

NARRATIVE: CASE EVENT DATE: 20180929
